FAERS Safety Report 9000213 (Version 1)
Quarter: 2013Q1

REPORT INFORMATION
  Report Type: Report from Study
  Country: CA (occurrence: CA)
  Receive Date: 20130102
  Receipt Date: 20130102
  Transmission Date: 20140127
  Serious: Yes (Hospitalization, Other)
  Sender: FDA-Public Use
  Company Number: CA-JNJFOC-20121210724

PATIENT
  Sex: Female
  Weight: 68.04 kg

DRUGS (2)
  1. STELARA [Suspect]
     Indication: PSORIASIS
     Dates: start: 2010
  2. STELARA [Suspect]
     Indication: PSORIASIS

REACTIONS (3)
  - Kidney infection [Recovered/Resolved]
  - Pharyngitis [Recovered/Resolved]
  - Fatigue [Unknown]
